FAERS Safety Report 17387044 (Version 1)
Quarter: 2020Q1

REPORT INFORMATION
  Report Type: Report from Study
  Country: GB (occurrence: GB)
  Receive Date: 20200206
  Receipt Date: 20200206
  Transmission Date: 20200409
  Serious: Yes (Other)
  Sender: FDA-Public Use
  Company Number: NVSC2019GB036283

PATIENT
  Sex: Female

DRUGS (1)
  1. SANDOSTATIN LAR DEPOT [Suspect]
     Active Substance: OCTREOTIDE ACETATE
     Indication: NEUROENDOCRINE TUMOUR
     Dosage: 50 MG, QMO
     Route: 030
     Dates: start: 2012

REACTIONS (3)
  - Fatigue [Unknown]
  - Hallucination [Unknown]
  - Migraine [Unknown]

NARRATIVE: CASE EVENT DATE: 201910
